FAERS Safety Report 19767697 (Version 1)
Quarter: 2021Q3

REPORT INFORMATION
  Report Type: Spontaneous
  Country: US (occurrence: US)
  Receive Date: 20210826
  Receipt Date: 20210826
  Transmission Date: 20211014
  Serious: Yes (Death)
  Sender: FDA-Public Use
  Company Number: None

PATIENT
  Age: 48 Year
  Sex: Female

DRUGS (2)
  1. SILDENAFIL CITRATE 20MG AUROBINDO PHARMA [Suspect]
     Active Substance: SILDENAFIL CITRATE
     Indication: PULMONARY HYPERTENSION
     Route: 048
     Dates: start: 201801, end: 20210811
  2. AMBRISENTAN 10MG CIPLA USA [Suspect]
     Active Substance: AMBRISENTAN
     Indication: PULMONARY HYPERTENSION
     Route: 048
     Dates: start: 201708, end: 20210811

REACTIONS (2)
  - Death [None]
  - COVID-19 [None]

NARRATIVE: CASE EVENT DATE: 20210811
